FAERS Safety Report 8004360-4 (Version None)
Quarter: 2011Q4

REPORT INFORMATION
  Report Type: 
  Country: None (occurrence: None)
  Receive Date: 20111223
  Receipt Date: 20091113
  Transmission Date: 20120403
  Serious: No
  Sender: FDA-Public Use
  Company Number: 2009BI037405

PATIENT
  Age: 46 Year
  Sex: Female

DRUGS (1)
  1. TYSABRI [Suspect]
     Indication: MULTIPLE SCLEROSIS
     Route: 042
     Dates: start: 20080908

REACTIONS (4)
  - PYREXIA [None]
  - HEADACHE [None]
  - MALAISE [None]
  - ADVERSE DRUG REACTION [None]
